FAERS Safety Report 8496944-4 (Version None)
Quarter: 2012Q3

REPORT INFORMATION
  Report Type: 
  Country: None (occurrence: None)
  Receive Date: 20120709
  Receipt Date: 20120627
  Transmission Date: 20120928
  Serious: Yes (Other)
  Sender: FDA-Public Use
  Company Number: AU-ELI_LILLY_AND_COMPANY-AU201206008567

PATIENT
  Sex: Male

DRUGS (2)
  1. BYETTA [Suspect]
     Indication: TYPE 2 DIABETES MELLITUS
     Dosage: 10 UG, BID
     Dates: end: 20120401
  2. BYETTA [Suspect]
     Dosage: 10 UG, BID
     Dates: start: 20120401, end: 20120401

REACTIONS (3)
  - BLOOD GLUCOSE ABNORMAL [None]
  - SURGERY [None]
  - DRUG INEFFECTIVE [None]
